FAERS Safety Report 5225628-0 (Version None)
Quarter: 2007Q1

REPORT INFORMATION
  Report Type: 
  Country: None (occurrence: None)
  Receive Date: 20070129
  Receipt Date: 20070116
  Transmission Date: 20070707
  Serious: Yes (Other)
  Sender: FDA-Public Use
  Company Number: 235067

PATIENT
  Age: 33 Year
  Sex: Female

DRUGS (6)
  1. XOLAIR [Suspect]
     Indication: ASTHMA
     Dosage: SUBCUTANEOUS
     Route: 058
  2. VENTOLINE (ALBUTEROL/ALBUTEROL SULFATE) [Concomitant]
  3. NASONEX [Concomitant]
  4. ADVAIR DISKUS 100/50 [Concomitant]
  5. EPIPEN (EPINEPHRINE) [Concomitant]
  6. SYNTHROID [Concomitant]

REACTIONS (2)
  - CONDITION AGGRAVATED [None]
  - PANIC ATTACK [None]
